FAERS Safety Report 4677825-0 (Version None)
Quarter: 2005Q2

REPORT INFORMATION
  Report Type: 
  Country: None (occurrence: None)
  Receive Date: 20050531
  Receipt Date: 20050519
  Transmission Date: 20051028
  Serious: Yes (Other)
  Sender: FDA-Public Use
  Company Number: CH-BRISTOL-MYERS SQUIBB COMPANY-12974325

PATIENT
  Age: 45 Year

DRUGS (1)
  1. METHOTREXATE [Suspect]
     Indication: RHEUMATOID ARTHRITIS
     Dosage: TREATMENT DURATION REPORTED AS SEVERAL YEARS

REACTIONS (2)
  - PARAESTHESIA [None]
  - PARAESTHESIA ORAL [None]
